FAERS Safety Report 4523092-8 (Version None)
Quarter: 2004Q4

REPORT INFORMATION
  Report Type: 
  Country: None (occurrence: None)
  Receive Date: 20041210
  Receipt Date: 20041129
  Transmission Date: 20050328
  Serious: Yes (Hospitalization)
  Sender: FDA-Public Use
  Company Number: PHEH2004US12727

PATIENT
  Age: 73 Year
  Sex: Female

DRUGS (3)
  1. DIURETICS [Concomitant]
  2. CARDIOVASCULAR DRUGS [Concomitant]
  3. ZELNORM [Suspect]
     Indication: IRRITABLE BOWEL SYNDROME
     Dosage: 1/2 6 MG, BID
     Route: 048
     Dates: start: 20040901, end: 20041115

REACTIONS (10)
  - ABDOMINAL ADHESIONS [None]
  - ABDOMINAL PAIN [None]
  - ABDOMINAL PAIN UPPER [None]
  - ADHESIOLYSIS [None]
  - CARDIAC DISORDER [None]
  - DIARRHOEA [None]
  - HYPOTENSION [None]
  - NAUSEA [None]
  - PULSE ABSENT [None]
  - VOLVULUS OF BOWEL [None]
